FAERS Safety Report 9297291 (Version 1)
Quarter: 2013Q2

REPORT INFORMATION
  Report Type: Spontaneous
  Country: US (occurrence: US)
  Receive Date: 20130520
  Receipt Date: 20130520
  Transmission Date: 20140414
  Serious: No
  Sender: FDA-Public Use
  Company Number: US-BIOGENIDEC-2013BI044082

PATIENT
  Age: 33 Year
  Sex: Female

DRUGS (1)
  1. TYSABRI [Suspect]
     Indication: CROHN^S DISEASE
     Route: 042
     Dates: start: 20080604

REACTIONS (6)
  - Migraine [Not Recovered/Not Resolved]
  - Abdominal pain [Recovered/Resolved]
  - Abdominal rigidity [Not Recovered/Not Resolved]
  - Restless legs syndrome [Recovered/Resolved]
  - Blood iron decreased [Recovered/Resolved]
  - Vitamin B12 decreased [Recovered/Resolved]
